FAERS Safety Report 9137169 (Version 7)
Quarter: 2013Q2

REPORT INFORMATION
  Report Type: Report from Study
  Country: NL (occurrence: NL)
  Receive Date: 20130304
  Receipt Date: 20130515
  Transmission Date: 20140414
  Serious: Yes (Hospitalization)
  Sender: FDA-Public Use
  Company Number: NL-BAXTER-2013BAX007619

PATIENT
  Age: 53 Year
  Sex: Female

DRUGS (6)
  1. KIOVIG 100 MG/ML SOLUTION POUR PERFUSION (20 G/200 ML) [Suspect]
     Indication: MULTIPLE SCLEROSIS
     Route: 042
     Dates: start: 20130129
  2. KIOVIG 100 MG/ML SOLUTION POUR PERFUSION (20 G/200 ML) [Suspect]
     Indication: OFF LABEL USE
     Route: 042
     Dates: start: 20130225
  3. KIOVIG 100 MG/ML SOLUTION POUR PERFUSION (20 G/200 ML) [Suspect]
     Route: 042
     Dates: start: 20130325
  4. KIOVIG 100 MG/ML SOLUTION POUR PERFUSION (5 G/50 ML) [Suspect]
     Indication: MULTIPLE SCLEROSIS
     Route: 042
     Dates: start: 20130129
  5. KIOVIG 100 MG/ML SOLUTION POUR PERFUSION (5 G/50 ML) [Suspect]
     Indication: OFF LABEL USE
     Route: 042
     Dates: start: 20130225
  6. KIOVIG 100 MG/ML SOLUTION POUR PERFUSION (5 G/50 ML) [Suspect]
     Route: 042
     Dates: start: 20130325

REACTIONS (11)
  - Influenza like illness [Unknown]
  - Malaise [Unknown]
  - Pyrexia [Unknown]
  - Decreased appetite [Unknown]
  - Nausea [Unknown]
  - Feeling cold [Unknown]
  - Chills [Unknown]
  - Skin discolouration [Unknown]
  - Hypotension [Unknown]
  - Dysarthria [Unknown]
  - Urinary tract infection [Unknown]
